FAERS Safety Report 4441352-6 (Version None)
Quarter: 2004Q3

REPORT INFORMATION
  Report Type: 
  Country: None (occurrence: None)
  Receive Date: 20040728
  Receipt Date: 20040325
  Transmission Date: 20050211
  Serious: No
  Sender: FDA-Public Use
  Company Number: USA040363220

PATIENT
  Age: 40 Year
  Weight: 80 kg

DRUGS (1)
  1. STRATTERA [Suspect]
     Indication: ATTENTION DEFICIT/HYPERACTIVITY DISORDER
     Dosage: 40 MG DAY

REACTIONS (5)
  - FEELING ABNORMAL [None]
  - ORGASM ABNORMAL [None]
  - PAIN [None]
  - SWELLING [None]
  - URINARY TRACT DISORDER [None]
